FAERS Safety Report 8333855-9 (Version None)
Quarter: 2012Q2

REPORT INFORMATION
  Report Type: 
  Country: None (occurrence: None)
  Receive Date: 20120503
  Receipt Date: 20120501
  Transmission Date: 20120825
  Serious: No
  Sender: FDA-Public Use
  Company Number: US-PFIZER INC-2012106824

PATIENT
  Sex: Male

DRUGS (1)
  1. ARTHROTEC [Suspect]
     Dosage: ONE TABLET OF UNKNOWN DOSE ONCE
     Route: 048
     Dates: start: 20120501

REACTIONS (1)
  - NAUSEA [None]
